FAERS Safety Report 17590646 (Version 5)
Quarter: 2020Q4

REPORT INFORMATION
  Report Type: Report from Study
  Country: CO (occurrence: CO)
  Receive Date: 20200327
  Receipt Date: 20201006
  Transmission Date: 20210113
  Serious: Yes (Death, Hospitalization, Other)
  Sender: FDA-Public Use
  Company Number: NVSC2019CO084344

PATIENT
  Sex: Female

DRUGS (3)
  1. KISQALI [Suspect]
     Active Substance: RIBOCICLIB
     Dosage: 600 MG, QD
     Route: 048
  2. FEMARA [Suspect]
     Active Substance: LETROZOLE
     Indication: BREAST CANCER
     Dosage: 2.5 MG, QD
     Route: 048
  3. KISQALI [Suspect]
     Active Substance: RIBOCICLIB
     Indication: BREAST CANCER METASTATIC
     Dosage: 600 MG, QD
     Route: 048
     Dates: end: 202003

REACTIONS (15)
  - Ill-defined disorder [Unknown]
  - Depression [Not Recovered/Not Resolved]
  - Red blood cell count decreased [Unknown]
  - General physical health deterioration [Fatal]
  - Nausea [Not Recovered/Not Resolved]
  - Fatigue [Not Recovered/Not Resolved]
  - Anaemia [Fatal]
  - Asthenia [Not Recovered/Not Resolved]
  - Haemoglobin decreased [Unknown]
  - Cardiac disorder [Fatal]
  - Immune system disorder [Unknown]
  - Breast cancer recurrent [Unknown]
  - Feeling abnormal [Not Recovered/Not Resolved]
  - Heart rate irregular [Unknown]
  - Vomiting [Not Recovered/Not Resolved]
